FAERS Safety Report 9373825 (Version 2)
Quarter: 2013Q3

REPORT INFORMATION
  Report Type: Spontaneous
  Country: DE (occurrence: DE)
  Receive Date: 20130628
  Receipt Date: 20130723
  Transmission Date: 20140515
  Serious: Yes (Death)
  Sender: FDA-Public Use
  Company Number: DE-AMGEN-DEUSP2013045318

PATIENT
  Age: 51 Year
  Sex: Male
  Weight: 97 kg

DRUGS (16)
  1. ENBREL [Suspect]
     Indication: RHEUMATOID ARTHRITIS
     Dosage: 50 MG, QWK
     Route: 058
     Dates: start: 201209
  2. PREDNISON [Concomitant]
     Dosage: 7.5 MG, UNK
     Route: 048
     Dates: start: 201209
  3. IBUFLAM                            /00109201/ [Concomitant]
     Dosage: UNK
  4. MARCUMAR [Concomitant]
     Dosage: UNK
  5. INEGY [Concomitant]
     Dosage: UNK
  6. JANUVIA [Concomitant]
     Dosage: UNK
  7. TORASEMIDE [Concomitant]
     Dosage: UNK
  8. PANTOPRAZOL [Concomitant]
     Dosage: UNK
  9. XIPAMIDE [Concomitant]
     Dosage: UNK
  10. METOPROLOL [Concomitant]
     Dosage: UNK
  11. JANUMET                            /06535301/ [Concomitant]
     Dosage: UNK
  12. STANGYL                            /00051802/ [Concomitant]
     Dosage: UNK
  13. LANTUS [Concomitant]
     Dosage: UNK
  14. ACTRAPID                           /00646001/ [Concomitant]
     Dosage: UNK
  15. ADENURIC [Concomitant]
     Dosage: UNK
  16. NOVALGIN                           /00169801/ [Concomitant]
     Dosage: UNK

REACTIONS (3)
  - Cardiac death [Fatal]
  - Syncope [Fatal]
  - Arrhythmia [Fatal]
